FAERS Safety Report 5339607-6 (Version None)
Quarter: 2007Q2

REPORT INFORMATION
  Report Type: 
  Country: None (occurrence: None)
  Receive Date: 20070525
  Receipt Date: 20070525
  Transmission Date: 20071010
  Serious: No
  Sender: FDA-Public Use
  Company Number: None

PATIENT
  Sex: Female
  Weight: 74 kg

DRUGS (1)
  1. CARBOPLATIN [Suspect]
     Dosage: 540 MG

REACTIONS (1)
  - VAGINAL DISCHARGE [None]
